FAERS Safety Report 17865168 (Version 1)
Quarter: 2020Q2

REPORT INFORMATION
  Report Type: Spontaneous
  Country: US (occurrence: US)
  Receive Date: 20200605
  Receipt Date: 20200605
  Transmission Date: 20200714
  Serious: No
  Sender: FDA-Public Use
  Company Number: US-DENDREON PHARMACEUTICAL LLC-2019DEN000352

PATIENT

DRUGS (2)
  1. PROVENGE [Suspect]
     Active Substance: SIPULEUCEL-T
     Dosage: DOSE #2
     Route: 042
     Dates: start: 20190909, end: 20190909
  2. PROVENGE [Suspect]
     Active Substance: SIPULEUCEL-T
     Indication: PROSTATE CANCER METASTATIC
     Dosage: DOSE #1
     Route: 042
     Dates: start: 20190826, end: 20190826

REACTIONS (1)
  - Citrate toxicity [Recovered/Resolved]

NARRATIVE: CASE EVENT DATE: 20190906
